FAERS Safety Report 10687532 (Version 1)
Quarter: 2014Q4

REPORT INFORMATION
  Report Type: Spontaneous
  Country: HK (occurrence: None)
  Receive Date: 20141230
  Receipt Date: 20141230
  Transmission Date: 20150529
  Serious: Yes (Hospitalization)
  Sender: FDA-Public Use
  Company Number: NSR_01739_2014

PATIENT
  Age: 17 Year
  Sex: Male

DRUGS (2)
  1. METOCLOPRAMIDE (METOCLOPRAMIDE) [Suspect]
     Active Substance: METOCLOPRAMIDE
     Indication: DIARRHOEA INFECTIOUS
     Dosage: DF?(NOT OTHERWISE SPECIFIED)
     Route: 042
  2. OMEPRAZOLE. [Concomitant]
     Active Substance: OMEPRAZOLE

REACTIONS (7)
  - Pneumonia [None]
  - Disseminated intravascular coagulation [None]
  - Gastritis haemorrhagic [None]
  - Circulatory collapse [None]
  - Carcinoid tumour [None]
  - Rhabdomyolysis [None]
  - Renal tubular necrosis [None]
